FAERS Safety Report 6171025-3 (Version None)
Quarter: 2009Q2

REPORT INFORMATION
  Report Type: 
  Country: None (occurrence: None)
  Receive Date: 20090429
  Receipt Date: 20090420
  Transmission Date: 20091009
  Serious: Yes (Hospitalization, Other)
  Sender: FDA-Public Use
  Company Number: GB-JNJFOC-20090404913

PATIENT
  Age: 75 Year
  Sex: Male

DRUGS (6)
  1. REMICADE [Suspect]
     Indication: CROHN'S DISEASE
     Route: 042
  2. REMICADE [Suspect]
     Indication: COLONIC FISTULA
     Route: 042
  3. CLARITHROMYCIN [Concomitant]
  4. LEVOFLOXACIN [Concomitant]
  5. PIPERACILLIN [Concomitant]
  6. TAZOBACTAM [Concomitant]

REACTIONS (6)
  - CROHN'S DISEASE [None]
  - HAEMORRHAGE URINARY TRACT [None]
  - PANCYTOPENIA [None]
  - PNEUMONIA [None]
  - POST PROCEDURAL HAEMORRHAGE [None]
  - THROMBOCYTOPENIA [None]
